FAERS Safety Report 24212801 (Version 1)
Quarter: 2024Q3

REPORT INFORMATION
  Report Type: Report from Study
  Country: CN (occurrence: CN)
  Receive Date: 20240815
  Receipt Date: 20240815
  Transmission Date: 20241016
  Serious: Yes (Death, Hospitalization, Other)
  Sender: SANOFI AVENTIS
  Company Number: CN-SA-SAC20240813000689

PATIENT
  Age: 75 Year
  Sex: Male

DRUGS (20)
  1. OXALIPLATIN [Suspect]
     Active Substance: OXALIPLATIN
     Indication: Oesophageal carcinoma
     Dosage: UNK
     Route: 065
     Dates: start: 20180511, end: 20240511
  2. OXALIPLATIN [Suspect]
     Active Substance: OXALIPLATIN
     Dosage: UNK
     Dates: start: 20180525
  3. CAPECITABINE [Concomitant]
     Active Substance: CAPECITABINE
     Dosage: 1650  MG
     Dates: start: 20180511
  4. CAPECITABINE [Concomitant]
     Active Substance: CAPECITABINE
     Dosage: 3300  MG
     Dates: start: 20180512, end: 20180517
  5. CAPECITABINE [Concomitant]
     Active Substance: CAPECITABINE
     Dosage: 1650  MG
     Dates: start: 20180518
  6. CAPECITABINE [Concomitant]
     Active Substance: CAPECITABINE
     Dosage: 1650  MG
     Dates: start: 20180519
  7. CAPECITABINE [Concomitant]
     Active Substance: CAPECITABINE
     Dosage: 3300  MG
     Dates: start: 20180520, end: 20180521
  8. CAPECITABINE [Concomitant]
     Active Substance: CAPECITABINE
     Dosage: 1650  MG
     Dates: start: 20180522
  9. CAPECITABINE [Concomitant]
     Active Substance: CAPECITABINE
     Dosage: 3300  MG
     Dates: start: 20180523
  10. CAPECITABINE [Concomitant]
     Active Substance: CAPECITABINE
     Dosage: 1650  MG
     Dates: start: 20180524
  11. DEXAMETHASONE [Concomitant]
     Active Substance: DEXAMETHASONE
     Dosage: UNK
  12. DIAZEPAM [Concomitant]
     Active Substance: DIAZEPAM
     Dosage: UNK
  13. PALONOSETRON HYDROCHLORIDE [Concomitant]
     Active Substance: PALONOSETRON HYDROCHLORIDE
     Dosage: UNK
  14. PROMETHAZINE [Concomitant]
     Active Substance: PROMETHAZINE HYDROCHLORIDE
     Dosage: UNK
  15. ACETYLCYSTEINE [Concomitant]
     Active Substance: ACETYLCYSTEINE
     Dosage: UNK
  16. MAGNESIUM ISOGLYCYRRHIZINATE [Concomitant]
     Active Substance: MAGNESIUM ISOGLYCYRRHIZINATE
     Dosage: UNK
  17. PANTOPRAZOLE SODIUM [Concomitant]
     Active Substance: PANTOPRAZOLE SODIUM
     Dosage: UNK
  18. IRON SUCROSE [Concomitant]
     Active Substance: IRON SUCROSE
     Dosage: UNK
  19. GLYCERIN [Concomitant]
     Active Substance: GLYCERIN
     Dosage: UNK
  20. ERYTHROPOIETIN [Concomitant]
     Active Substance: ERYTHROPOIETIN
     Dosage: UNK

REACTIONS (3)
  - Malignant neoplasm progression [Fatal]
  - Malaise [Not Recovered/Not Resolved]
  - Anaemia [Not Recovered/Not Resolved]

NARRATIVE: CASE EVENT DATE: 20180601
